FAERS Safety Report 15505460 (Version 1)
Quarter: 2018Q4

REPORT INFORMATION
  Report Type: Spontaneous
  Country: US (occurrence: US)
  Receive Date: 20181016
  Receipt Date: 20181016
  Transmission Date: 20190205
  Serious: No
  Sender: FDA-Public Use
  Company Number: US-NEUROCRINE BIOSCIENCES INC.-2018NBI02957

PATIENT
  Age: 59 Year
  Sex: Male

DRUGS (5)
  1. LITHIUM. [Concomitant]
     Active Substance: LITHIUM
     Indication: SCHIZOAFFECTIVE DISORDER
  2. BENZTROPINE. [Concomitant]
     Active Substance: BENZTROPINE
     Indication: SCHIZOAFFECTIVE DISORDER
  3. INGREZZA [Suspect]
     Active Substance: VALBENAZINE
     Indication: PRODUCT USED FOR UNKNOWN INDICATION
  4. INVEGA [Concomitant]
     Active Substance: PALIPERIDONE
     Indication: SCHIZOAFFECTIVE DISORDER
  5. INGREZZA [Suspect]
     Active Substance: VALBENAZINE

REACTIONS (1)
  - Tremor [Recovered/Resolved]
